FAERS Safety Report 5132551-9 (Version None)
Quarter: 2006Q4

REPORT INFORMATION
  Report Type: 
  Country: None (occurrence: None)
  Receive Date: 20061017
  Receipt Date: 20061006
  Transmission Date: 20070319
  Serious: Yes (Other)
  Sender: FDA-Public Use
  Company Number: GXKR2006GB06275

PATIENT
  Age: 73 Year
  Sex: Female
  Weight: 95.4 kg

DRUGS (12)
  1. TRAMADOL HCL [Suspect]
     Indication: OSTEOARTHRITIS
     Dosage: 50 MG, QD, ORAL
     Route: 048
     Dates: start: 20060823, end: 20060919
  2. ACARBOSE [Concomitant]
  3. ASPIRIN [Concomitant]
  4. ATENOLOL [Concomitant]
  5. ATORVASTATIN CALCIUM [Concomitant]
  6. BENDROFLUMETHIAZIDE (BENDROFLUMETHIAZIDE) [Concomitant]
  7. BEZAFIBRATE (BEZAFIBRATE) [Concomitant]
  8. DIHYDROCODEINE (DIHYDROCODEINE) [Concomitant]
  9. GAVISCON [Concomitant]
  10. METFORMIN HCL [Concomitant]
  11. MIXTARD HUMAN (INSULIN HUMAN) [Concomitant]
  12. NICORANDIL (NICORANDIL) [Concomitant]

REACTIONS (1)
  - HYPOGLYCAEMIA [None]
